FAERS Safety Report 10865756 (Version 1)
Quarter: 2015Q1

REPORT INFORMATION
  Report Type: Spontaneous
  Country: US (occurrence: US)
  Receive Date: 20150224
  Receipt Date: 20150224
  Transmission Date: 20150721
  Serious: No
  Sender: FDA-Public Use
  Company Number: US-GLAXOSMITHKLINE-US2015004220

PATIENT
  Age: 85 Year
  Sex: Male

DRUGS (7)
  1. METOPROLOL [Concomitant]
     Active Substance: METOPROLOL
  2. TERAZOSIN [Concomitant]
     Active Substance: TERAZOSIN\TERAZOSIN HYDROCHLORIDE
  3. BENZONATATE. [Concomitant]
     Active Substance: BENZONATATE
  4. WARFARIN [Concomitant]
     Active Substance: WARFARIN
  5. VENTOLIN [Suspect]
     Active Substance: ALBUTEROL SULFATE
     Indication: PRODUCT USED FOR UNKNOWN INDICATION
     Dosage: 1 PUFF(S), UNK
     Dates: start: 20150112
  6. NIFEDIPINE. [Concomitant]
     Active Substance: NIFEDIPINE
  7. LEVOTHYROXINE [Concomitant]
     Active Substance: LEVOTHYROXINE

REACTIONS (6)
  - Malaise [Recovering/Resolving]
  - Device use error [Unknown]
  - Sneezing [Recovering/Resolving]
  - Musculoskeletal chest pain [Unknown]
  - Cough [Recovering/Resolving]
  - Nasopharyngitis [Recovering/Resolving]

NARRATIVE: CASE EVENT DATE: 20150112
